FAERS Safety Report 18413440 (Version 4)
Quarter: 2020Q4

REPORT INFORMATION
  Report Type: Spontaneous
  Country: JP (occurrence: JP)
  Receive Date: 20201022
  Receipt Date: 20201119
  Transmission Date: 20210114
  Serious: Yes (Death, Hospitalization)
  Sender: FDA-Public Use
  Company Number: JP-ROCHE-2699108

PATIENT
  Age: 80 Year
  Sex: Female
  Weight: 49 kg

DRUGS (7)
  1. LEVOFOLINATE CALCIUM [Concomitant]
     Active Substance: LEVOLEUCOVORIN CALCIUM
     Indication: RECTAL CANCER
     Route: 041
     Dates: start: 20191105
  2. WARFARIN [Concomitant]
     Active Substance: WARFARIN
     Route: 065
  3. OXALIPLATIN. [Concomitant]
     Active Substance: OXALIPLATIN
     Indication: RECTAL CANCER
     Route: 041
     Dates: start: 20191105, end: 202002
  4. 5-FU [Concomitant]
     Active Substance: FLUOROURACIL
     Indication: RECTAL CANCER
     Route: 040
     Dates: start: 201911
  5. AVASTIN [Suspect]
     Active Substance: BEVACIZUMAB
     Indication: RECTAL CANCER
     Route: 041
     Dates: start: 20191112
  6. AVASTIN [Suspect]
     Active Substance: BEVACIZUMAB
     Route: 041
     Dates: start: 20200728, end: 20200908
  7. 5-FU [Concomitant]
     Active Substance: FLUOROURACIL
     Route: 041
     Dates: start: 201911

REACTIONS (1)
  - Hepatic perfusion disorder [Fatal]

NARRATIVE: CASE EVENT DATE: 20200908
